FAERS Safety Report 20448695 (Version 1)
Quarter: 2022Q1

REPORT INFORMATION
  Report Type: Spontaneous
  Country: AR (occurrence: AR)
  Receive Date: 20220209
  Receipt Date: 20220209
  Transmission Date: 20220423
  Serious: Yes (Other)
  Sender: FDA-Public Use
  Company Number: AR-PFIZER INC-202200080167

PATIENT
  Age: 69 Year
  Sex: Male

DRUGS (1)
  1. SUTENT [Suspect]
     Active Substance: SUNITINIB MALATE
     Indication: Metastatic renal cell carcinoma
     Dosage: 50 MG, CYCLIC (45 DAYS, SCHEME 4/2 REST)
     Dates: start: 20210708

REACTIONS (4)
  - Weight decreased [Unknown]
  - Haemodialysis [Unknown]
  - General physical health deterioration [Unknown]
  - Vomiting [Unknown]

NARRATIVE: CASE EVENT DATE: 20211201
